FAERS Safety Report 6018364-4 (Version None)
Quarter: 2008Q4

REPORT INFORMATION
  Report Type: 
  Country: None (occurrence: None)
  Receive Date: 20081218
  Receipt Date: 20080910
  Transmission Date: 20090506
  Serious: Yes (Other)
  Sender: FDA-Public Use
  Company Number: 08-001466

PATIENT
  Age: 20 Year
  Sex: Female
  Weight: 72.6 kg

DRUGS (1)
  1. LOESTRIN 24 FE [Suspect]
     Indication: MENSTRUAL CYCLE MANAGEMENT
     Dosage: 20/1000 UG, QD, ORAL
     Route: 048
     Dates: start: 20080901

REACTIONS (3)
  - ABDOMINAL PAIN [None]
  - CHOLELITHIASIS [None]
  - METRORRHAGIA [None]
